FAERS Safety Report 14039373 (Version 2)
Quarter: 2017Q4

REPORT INFORMATION
  Report Type: Spontaneous
  Country: US (occurrence: US)
  Receive Date: 20171004
  Receipt Date: 20171220
  Transmission Date: 20180321
  Serious: Yes (Other)
  Sender: FDA-Public Use
  Company Number: US-BAYER-2017-189053

PATIENT
  Age: 36 Year
  Sex: Female

DRUGS (2)
  1. MIRENA [Suspect]
     Active Substance: LEVONORGESTREL
     Indication: CONTRACEPTION
  2. MIRENA [Suspect]
     Active Substance: LEVONORGESTREL
     Indication: CONTRACEPTION
     Dosage: 20 MCG/24HR, CONT
     Route: 015
     Dates: start: 20170830, end: 20170925

REACTIONS (8)
  - Genital haemorrhage [None]
  - Device expulsion [None]
  - Ovarian cyst [None]
  - Medical device pain [None]
  - Menorrhagia [None]
  - Headache [None]
  - Abdominal pain lower [None]
  - Pelvic pain [None]

NARRATIVE: CASE EVENT DATE: 2017
